FAERS Safety Report 21316279 (Version 1)
Quarter: 2022Q3

REPORT INFORMATION
  Report Type: Spontaneous
  Country: ES (occurrence: ES)
  Receive Date: 20220910
  Receipt Date: 20220910
  Transmission Date: 20221027
  Serious: Yes (Other)
  Sender: FDA-Public Use
  Company Number: ES-NOVARTISPH-NVSC2022ES202574

PATIENT
  Age: 48 Year
  Sex: Female

DRUGS (1)
  1. ELTROMBOPAG OLAMINE [Suspect]
     Active Substance: ELTROMBOPAG OLAMINE
     Indication: Bone marrow failure
     Dosage: UNK
     Route: 065

REACTIONS (3)
  - Hepatic enzyme abnormal [Recovered/Resolved]
  - Transaminases abnormal [Recovered/Resolved]
  - Product use in unapproved indication [Unknown]
